FAERS Safety Report 16100030 (Version 1)
Quarter: 2019Q1

REPORT INFORMATION
  Report Type: Spontaneous
  Country: PT (occurrence: PT)
  Receive Date: 20190321
  Receipt Date: 20190321
  Transmission Date: 20190418
  Serious: Yes (Disabling, Other)
  Sender: FDA-Public Use
  Company Number: PT-ELI_LILLY_AND_COMPANY-PT201902008114

PATIENT
  Age: 61 Year
  Sex: Female

DRUGS (2)
  1. OLANZAPINE. [Suspect]
     Active Substance: OLANZAPINE
     Indication: PRODUCT USED FOR UNKNOWN INDICATION
     Dosage: UNK UNK, UNKNOWN
     Route: 065
     Dates: start: 201701
  2. PROPOFOL. [Concomitant]
     Active Substance: PROPOFOL
     Indication: COMPUTERISED TOMOGRAM
     Dosage: UNK, UNKNOWN
     Route: 065

REACTIONS (7)
  - Musculoskeletal stiffness [Recovered/Resolved]
  - Torticollis [Recovering/Resolving]
  - Akathisia [Recovering/Resolving]
  - Posture abnormal [Recovering/Resolving]
  - Scoliosis [Unknown]
  - Feeding disorder [Recovering/Resolving]
  - Kyphosis [Unknown]
